FAERS Safety Report 6761999-1 (Version None)
Quarter: 2010Q2

REPORT INFORMATION
  Report Type: 
  Country: None (occurrence: None)
  Receive Date: 20100609
  Receipt Date: 20100529
  Transmission Date: 20101027
  Serious: Yes (Other)
  Sender: FDA-Public Use
  Company Number: PHHY2010CA34763

PATIENT
  Age: 87 Year
  Sex: Female

DRUGS (2)
  1. EXELON [Suspect]
     Route: 062
  2. MICARDIS HCT [Concomitant]

REACTIONS (5)
  - APPLICATION SITE RASH [None]
  - APPLICATION SITE VESICLES [None]
  - ERYTHEMA [None]
  - PRURITUS [None]
  - ULCER [None]
